FAERS Safety Report 12875844 (Version 8)
Quarter: 2016Q4

REPORT INFORMATION
  Report Type: Spontaneous
  Country: IT (occurrence: IT)
  Receive Date: 20161024
  Receipt Date: 20161121
  Transmission Date: 20170207
  Serious: Yes (Other)
  Sender: FDA-Public Use
  Company Number: IT-TEVA-703746ACC

PATIENT
  Age: 68 Year
  Sex: Male

DRUGS (8)
  1. PARACETAMOL [Suspect]
     Active Substance: ACETAMINOPHEN
     Indication: PAIN
     Dosage: 500 MILLIGRAM DAILY;
     Route: 065
  2. VORICONAZOLE. [Concomitant]
     Active Substance: VORICONAZOLE
     Indication: MYCOTIC ENDOPHTHALMITIS
     Dosage: 12 MG/KG/TOTAL
     Route: 042
  3. GABAPENTIN. [Suspect]
     Active Substance: GABAPENTIN
     Indication: PAIN
     Dosage: 300 MILLIGRAM DAILY;
     Route: 065
  4. PARACETAMOL [Suspect]
     Active Substance: ACETAMINOPHEN
     Indication: EYE PAIN
  5. VORICONAZOLE. [Concomitant]
     Active Substance: VORICONAZOLE
     Dosage: 500 MILLIGRAM DAILY; 8 MG/KG/TOTAL
     Route: 042
  6. CODEINE [Suspect]
     Active Substance: CODEINE
     Indication: EYE PAIN
  7. GABAPENTIN. [Suspect]
     Active Substance: GABAPENTIN
     Indication: EYE PAIN
  8. CODEINE [Suspect]
     Active Substance: CODEINE
     Indication: PAIN

REACTIONS (15)
  - Cataract [Unknown]
  - Psychomotor skills impaired [Unknown]
  - Hepatocellular injury [Recovering/Resolving]
  - Apraxia [Unknown]
  - Product use issue [Unknown]
  - Muscular weakness [Recovering/Resolving]
  - Nervous system disorder [Unknown]
  - Gait disturbance [Unknown]
  - Hallucination [Unknown]
  - Neurological symptom [Recovering/Resolving]
  - Toxicity to various agents [Unknown]
  - Balance disorder [Recovering/Resolving]
  - Cholestasis [Unknown]
  - Ataxia [Unknown]
  - Posture abnormal [Unknown]
